FAERS Safety Report 18986735 (Version 3)
Quarter: 2022Q1

REPORT INFORMATION
  Report Type: Spontaneous
  Country: GB (occurrence: GB)
  Receive Date: 20210309
  Receipt Date: 20220105
  Transmission Date: 20220423
  Serious: Yes (Death, Life-Threatening, Hospitalization, Other)
  Sender: FDA-Public Use
  Company Number: GB-MLMSERVICE-20210223-2741520-1

PATIENT
  Age: 75 Year
  Sex: Male

DRUGS (10)
  1. AMIKACIN SULFATE [Suspect]
     Active Substance: AMIKACIN SULFATE
     Indication: Antibiotic therapy
     Dosage: UNK
  2. MEROPENEM [Suspect]
     Active Substance: MEROPENEM
     Indication: Antibiotic therapy
     Dosage: UNK
  3. PIPERACILLIN SODIUM\TAZOBACTAM SODIUM [Suspect]
     Active Substance: PIPERACILLIN SODIUM\TAZOBACTAM SODIUM
     Indication: Antibiotic therapy
     Dosage: UNK
  4. HUMAN IMMUNOGLOBULIN G [Suspect]
     Active Substance: HUMAN IMMUNOGLOBULIN G
     Indication: Haemophagocytic lymphohistiocytosis
     Dosage: UNK
     Route: 042
  5. AMOXICILLIN\CLAVULANATE POTASSIUM [Suspect]
     Active Substance: AMOXICILLIN\CLAVULANATE POTASSIUM
     Indication: Antibiotic therapy
     Dosage: UNK
  6. TACROLIMUS [Suspect]
     Active Substance: TACROLIMUS
     Indication: Immunosuppressant drug therapy
     Dosage: 1.5 MG, 2X/DAY (BID)
  7. PREDNISOLONE [Suspect]
     Active Substance: PREDNISOLONE
     Indication: Immunosuppressant drug therapy
     Dosage: 5 MG, 1X/DAY (OD)
  8. PREDNISOLONE [Suspect]
     Active Substance: PREDNISOLONE
     Dosage: 10 MG, 1X/DAY
  9. MYCOPHENOLATE MOFETIL [Suspect]
     Active Substance: MYCOPHENOLATE MOFETIL
     Indication: Immunosuppressant drug therapy
     Dosage: 1 G, 2X/DAY (BID)
  10. COTRIMOXAZOLE [Suspect]
     Active Substance: SULFAMETHOXAZOLE\TRIMETHOPRIM
     Indication: Prophylaxis
     Dosage: UNK

REACTIONS (7)
  - Delirium [Fatal]
  - Tachypnoea [Fatal]
  - Ischaemia [Fatal]
  - Sepsis [Fatal]
  - Dehydration [Fatal]
  - Tachycardia [Fatal]
  - Gastroenteritis adenovirus [Fatal]
